FAERS Safety Report 5722584-3 (Version None)
Quarter: 2008Q2

REPORT INFORMATION
  Report Type: 
  Country: None (occurrence: None)
  Receive Date: 20080429
  Receipt Date: 20071113
  Transmission Date: 20081010
  Serious: No
  Sender: FDA-Public Use
  Company Number: US-ASTRAZENECA-2007UW26300

PATIENT
  Sex: Female
  Weight: 58.1 kg

DRUGS (3)
  1. NEXIUM [Suspect]
     Indication: GASTROOESOPHAGEAL REFLUX DISEASE
     Route: 048
     Dates: start: 20070101, end: 20070101
  2. NEXIUM [Suspect]
     Route: 048
     Dates: start: 20071112
  3. VITAMIN TAB [Concomitant]

REACTIONS (2)
  - HEADACHE [None]
  - PANIC ATTACK [None]
